FAERS Safety Report 7728346-X (Version None)
Quarter: 2011Q3

REPORT INFORMATION
  Report Type: 
  Country: None (occurrence: None)
  Receive Date: 20110905
  Receipt Date: 20110901
  Transmission Date: 20111222
  Serious: Yes (Other)
  Sender: FDA-Public Use
  Company Number: PHEH2011US01508

PATIENT
  Sex: Male

DRUGS (2)
  1. EXJADE [Suspect]
     Dosage: 1000 MG, QD
     Route: 048
  2. EXJADE [Suspect]
     Dosage: 1000 MG, BID
     Route: 048
     Dates: start: 20110730

REACTIONS (5)
  - INCREASED UPPER AIRWAY SECRETION [None]
  - EYE HAEMORRHAGE [None]
  - AMBLYOPIA [None]
  - OCULAR DISCOMFORT [None]
  - VISUAL IMPAIRMENT [None]
